FAERS Safety Report 21321376 (Version 1)
Quarter: 2022Q3

REPORT INFORMATION
  Report Type: Report from Study
  Country: GB (occurrence: GB)
  Receive Date: 20220912
  Receipt Date: 20220912
  Transmission Date: 20221027
  Serious: Yes (Other)
  Sender: FDA-Public Use
  Company Number: GB-CURIUM-2022000621

PATIENT
  Sex: Male

DRUGS (2)
  1. IODINE I-131 [Suspect]
     Active Substance: IODINE I-131
     Indication: Hyperthyroidism
     Route: 065
  2. UNSPECIFIED INGREDIENT [Concomitant]
     Active Substance: UNSPECIFIED INGREDIENT
     Indication: Prophylaxis
     Route: 065

REACTIONS (1)
  - Condition aggravated [Unknown]
